FAERS Safety Report 20440539 (Version 1)
Quarter: 2022Q1

REPORT INFORMATION
  Report Type: Spontaneous
  Country: US (occurrence: None)
  Receive Date: 20220207
  Receipt Date: 20220207
  Transmission Date: 20220423
  Serious: No
  Sender: FDA-Public Use
  Company Number: None

PATIENT
  Age: 55 Year
  Sex: Female

DRUGS (1)
  1. EVEROLIMUS [Suspect]
     Active Substance: EVEROLIMUS
     Indication: Breast cancer
     Dosage: 10 MG DAILY ORAL?
     Route: 048
     Dates: start: 202102

REACTIONS (6)
  - Blood glucose increased [None]
  - Blood cholesterol increased [None]
  - Palpitations [None]
  - Heart rate increased [None]
  - Abdominal discomfort [None]
  - Therapy interrupted [None]

NARRATIVE: CASE EVENT DATE: 20220101
